FAERS Safety Report 14525634 (Version 1)
Quarter: 2018Q1

REPORT INFORMATION
  Report Type: Report from Study
  Country: CN (occurrence: CN)
  Receive Date: 20180213
  Receipt Date: 20180213
  Transmission Date: 20180509
  Serious: Yes (Death)
  Sender: FDA-Public Use
  Company Number: CN-PFIZER INC-2018055203

PATIENT

DRUGS (10)
  1. CYTARABINE. [Suspect]
     Active Substance: CYTARABINE
     Dosage: UNK, CYCLIC (MAINTENANCE INCLUDED TWO CYCLES OF HAG (EVERY SIX MONTHS)
  2. DASATINIB. [Suspect]
     Active Substance: DASATINIB
     Indication: ACUTE LYMPHOCYTIC LEUKAEMIA
     Dosage: 70 MG, 2X/DAY
  3. DASATINIB. [Suspect]
     Active Substance: DASATINIB
     Dosage: UNK, DAILY (MAINTENANCE INCLUDED TWO CYCLES OF HAG (EVERY SIX MONTHS) IN ADDITION TO DAILY DASATIN)
  4. HOMOHARRINGTONIN [Suspect]
     Active Substance: OMACETAXINE MEPESUCCINATE
     Dosage: UNK, CYCLIC (MAINTENANCE INCLUDED TWO CYCLES OF HAG (EVERY SIX MONTHS)
  5. G-CSF [Suspect]
     Active Substance: GRANULOCYTE COLONY-STIMULATING FACTOR NOS
     Dosage: UNK, CYCLIC (TWO CYCLES OF HAG (EVERY SIX MONTHS)
  6. CYTARABINE. [Suspect]
     Active Substance: CYTARABINE
     Indication: ACUTE LYMPHOCYTIC LEUKAEMIA
     Dosage: 10 MG, UNK (Q12H/DAYS 1-14 EVERY THREE MONTH/CYCLE) SIX CYCLES
  7. VINCRISTINE [Suspect]
     Active Substance: VINCRISTINE
     Indication: ACUTE LYMPHOCYTIC LEUKAEMIA
     Dosage: UNK
  8. PREDNISONE. [Suspect]
     Active Substance: PREDNISONE
     Indication: ACUTE LYMPHOCYTIC LEUKAEMIA
     Dosage: UNK
  9. G-CSF [Suspect]
     Active Substance: GRANULOCYTE COLONY-STIMULATING FACTOR NOS
     Indication: ACUTE LYMPHOCYTIC LEUKAEMIA
     Dosage: 5 UG/KG, CYCLIC (ON DAY ONE) SIX CYCLES
  10. HOMOHARRINGTONIN [Suspect]
     Active Substance: OMACETAXINE MEPESUCCINATE
     Indication: ACUTE LYMPHOCYTIC LEUKAEMIA
     Dosage: 1 MG, CYCLIC (DAYS 1-14) SIX CYCLES

REACTIONS (1)
  - Death [Fatal]
